FAERS Safety Report 6903964-7 (Version None)
Quarter: 2010Q3

REPORT INFORMATION
  Report Type: 
  Country: None (occurrence: None)
  Receive Date: 20100804
  Receipt Date: 20090207
  Transmission Date: 20110219
  Serious: No
  Sender: FDA-Public Use
  Company Number: US-PFIZER INC-2008150584

PATIENT
  Sex: Male
  Weight: 77.098 kg

DRUGS (5)
  1. LYRICA [Suspect]
     Indication: CONVULSION
     Dosage: 100 MG, 2X/DAY
     Dates: start: 20080801
  2. DILANTIN [Concomitant]
  3. VALSARTAN [Concomitant]
  4. MACRODANTIN [Concomitant]
     Dates: end: 20081101
  5. KEPPRA [Concomitant]

REACTIONS (1)
  - HYPERKALAEMIA [None]
